FAERS Safety Report 9962589 (Version 1)
Quarter: 2014Q1

REPORT INFORMATION
  Report Type: Spontaneous
  Country: US (occurrence: US)
  Receive Date: 20140305
  Receipt Date: 20140305
  Transmission Date: 20141002
  Serious: No
  Sender: FDA-Public Use
  Company Number: US-ABBVIE-13P-163-1115644-00

PATIENT
  Age: 39 Year
  Sex: Male
  Weight: 86.26 kg

DRUGS (5)
  1. HUMIRA [Suspect]
     Indication: COLITIS ULCERATIVE
     Dates: start: 20130621, end: 20130621
  2. HUMIRA [Suspect]
     Dates: start: 20130628, end: 20130628
  3. HUMIRA [Suspect]
     Dates: start: 20130705
  4. AZATHIOPRINE [Concomitant]
     Indication: COLITIS ULCERATIVE
  5. MESALAMINE [Concomitant]
     Indication: COLITIS ULCERATIVE

REACTIONS (1)
  - Injection site pain [Not Recovered/Not Resolved]
